FAERS Safety Report 5633504-4 (Version None)
Quarter: 2008Q1

REPORT INFORMATION
  Report Type: 
  Country: None (occurrence: None)
  Receive Date: 20080221
  Receipt Date: 20080212
  Transmission Date: 20080703
  Serious: Yes (Hospitalization)
  Sender: FDA-Public Use
  Company Number: AU-PFIZER INC-2008007929

PATIENT
  Sex: Female

DRUGS (10)
  1. SU-011,248 [Suspect]
     Indication: GASTROINTESTINAL STROMAL TUMOUR
     Dosage: TEXT:37.5MG - 25MG-FREQ:4WEEKS ON 2 WEEKS OFF
     Route: 048
  2. DIAFORMIN [Concomitant]
     Route: 048
  3. NEXIUM [Concomitant]
     Route: 048
  4. SIMVASTATIN [Concomitant]
     Route: 048
  5. ASPIRIN [Concomitant]
     Route: 048
  6. TRITACE [Concomitant]
     Route: 048
  7. NORVASC [Concomitant]
     Route: 048
  8. CALTRATE [Concomitant]
     Route: 048
  9. COLOXYL WITH SENNA [Concomitant]
     Route: 048
  10. OSTELIN [Concomitant]
     Route: 048

REACTIONS (1)
  - CEREBROVASCULAR ACCIDENT [None]
